FAERS Safety Report 8764330 (Version 1)
Quarter: 2012Q4

REPORT INFORMATION
  Report Type: 
  Country: US (occurrence: US)
  Receive Date: 20120831
  Receipt Date: 20120831
  Transmission Date: 20130627
  Serious: No
  Sender: FDA-Public Use
  Company Number: US-PFIZER INC-2012212524

PATIENT
  Age: 57 Year
  Sex: Female
  Weight: 79.82 kg

DRUGS (2)
  1. CELEBREX [Suspect]
     Indication: OSTEOARTHRITIS
     Dosage: UNK,daily
     Route: 048
     Dates: start: 2012
  2. VERAPAMIL [Concomitant]
     Indication: HYPERTENSION
     Dosage: 240 mg, daily

REACTIONS (2)
  - Expired drug administered [Not Recovered/Not Resolved]
  - Arthropathy [Not Recovered/Not Resolved]
